FAERS Safety Report 16276999 (Version 2)
Quarter: 2019Q2

REPORT INFORMATION
  Report Type: Spontaneous
  Country: US (occurrence: US)
  Receive Date: 20190506
  Receipt Date: 20190621
  Transmission Date: 20190711
  Serious: No
  Sender: FDA-Public Use
  Company Number: US-PFIZER INC-2019188340

PATIENT
  Age: 12 Year
  Sex: Female
  Weight: 19.96 kg

DRUGS (1)
  1. GENOTROPIN MQ [Suspect]
     Active Substance: SOMATROPIN
     Indication: HYPOPITUITARISM
     Dosage: 1 MG, 1X/DAY (EVERY NIGHT AT BEDTIME)
     Route: 058
     Dates: start: 20160914

REACTIONS (1)
  - Pruritus [Unknown]
